FAERS Safety Report 7283752-5 (Version None)
Quarter: 2011Q1

REPORT INFORMATION
  Report Type: 
  Country: None (occurrence: None)
  Receive Date: 20110209
  Receipt Date: 20110207
  Transmission Date: 20110831
  Serious: Yes (Other)
  Sender: FDA-Public Use
  Company Number: JP-PFIZER INC-2011027328

PATIENT
  Age: 22 Year
  Sex: Male

DRUGS (2)
  1. CHAMPIX [Suspect]
     Dosage: 1 MG, DAILY
     Route: 048
     Dates: start: 20110124, end: 20110203
  2. CHAMPIX [Suspect]
     Dosage: 0.5 MG, 2X/DAY
     Dates: start: 20110207

REACTIONS (1)
  - GASTRIC MUCOSAL LESION [None]
